FAERS Safety Report 12138268 (Version 1)
Quarter: 2016Q1

REPORT INFORMATION
  Report Type: Spontaneous
  Country: US (occurrence: US)
  Receive Date: 20160302
  Receipt Date: 20160302
  Transmission Date: 20160526
  Serious: Yes (Other)
  Sender: FDA-Public Use
  Company Number: US-PROCTER+GAMBLE-GS16022069

PATIENT
  Age: 45 Year
  Sex: Female

DRUGS (2)
  1. DEXTROMETHORPHAN [Suspect]
     Active Substance: DEXTROMETHORPHAN
     Dosage: 120 TO 180 MG A DAY CONTINUOUSLY; USED AS MUCH AS 800MG IN A SINGLE DOSAGE
     Route: 048
  2. DEXTROMETHORPHAN [Suspect]
     Active Substance: DEXTROMETHORPHAN
     Dosage: 800 MG PER DOSE,OFTEN MORE THAN ONCE A DAY
     Route: 048

REACTIONS (20)
  - Euphoric mood [Unknown]
  - Restlessness [Unknown]
  - Hyperhidrosis [Unknown]
  - Anxiety [Unknown]
  - Intentional self-injury [Unknown]
  - Disturbance in social behaviour [Unknown]
  - Hallucination, auditory [Unknown]
  - Drug dependence [Recovered/Resolved]
  - Central nervous system stimulation [Unknown]
  - Psychotic disorder [Unknown]
  - Burning sensation [Unknown]
  - Stab wound [Unknown]
  - Depression [Unknown]
  - Hallucination, visual [Unknown]
  - Tachycardia [Unknown]
  - Hyperventilation [Unknown]
  - Drug tolerance [Unknown]
  - Drug withdrawal syndrome [Unknown]
  - Fatigue [Unknown]
  - Overdose [Unknown]
